FAERS Safety Report 7727440-7 (Version None)
Quarter: 2011Q3

REPORT INFORMATION
  Report Type: 
  Country: None (occurrence: None)
  Receive Date: 20110902
  Receipt Date: 20110824
  Transmission Date: 20111222
  Serious: Yes (Congenital Anomaly)
  Sender: FDA-Public Use
  Company Number: US-GILEAD-2011-0043304

PATIENT

DRUGS (2)
  1. TRUVADA [Suspect]
     Indication: HEPATITIS B
     Route: 064
  2. ENTECAVIR [Concomitant]
     Indication: HEPATITIS B
     Route: 064

REACTIONS (1)
  - ATRIOVENTRICULAR BLOCK COMPLETE [None]
